FAERS Safety Report 9667824 (Version 3)
Quarter: 2014Q2

REPORT INFORMATION
  Report Type: Spontaneous
  Country: US (occurrence: None)
  Receive Date: 20131101
  Receipt Date: 20140414
  Transmission Date: 20141212
  Serious: Yes (Hospitalization, Other)
  Sender: FDA-Public Use
  Company Number: 2013-US-002439

PATIENT
  Age: 30 Year
  Sex: Female

DRUGS (12)
  1. XYREM (SODIUM OXYBATE) ORAL SOLUTION, 500MG/ML [Suspect]
     Indication: NARCOLEPSY
     Route: 048
     Dates: start: 201308, end: 2013
  2. XYREM (SODIUM OXYBATE) ORAL SOLUTION, 500MG/ML [Suspect]
     Indication: CATAPLEXY
     Route: 048
     Dates: start: 201308, end: 2013
  3. DEXTROSTAT (DEXAMFETAMINE SULFATE) [Concomitant]
  4. IBUPROFEN [Concomitant]
  5. CLARITIN (LORATADINE) [Concomitant]
  6. TOPROL (METOPROLOL SUCCINATE) [Concomitant]
  7. LOPRESSOR (METOPROLOL TARTRATE) [Concomitant]
  8. PRILOSEC (OMEPRAZOLE) [Concomitant]
  9. VALTREX (VALACICLOVIR HYDROCHLORIDE) [Concomitant]
  10. KLONOPIN (CLONAZEPAM) (TABLETS) [Concomitant]
  11. TOPAMAX (TOPIRAMATE) [Suspect]
     Indication: PRODUCT USED FOR UNKNOWN INDICATION
  12. DEXEDRINE (DEXAMFETAMINE SULFATE) [Suspect]
     Indication: PRODUCT USED FOR UNKNOWN INDICATION

REACTIONS (12)
  - Investigation [None]
  - Headache [None]
  - Migraine [None]
  - Condition aggravated [None]
  - Drug interaction [None]
  - Tachycardia [None]
  - Palpitations [None]
  - Restless legs syndrome [None]
  - Hot flush [None]
  - Insomnia [None]
  - Paraesthesia [None]
  - Somnolence [None]
